FAERS Safety Report 5319768-5 (Version None)
Quarter: 2007Q1

REPORT INFORMATION
  Report Type: 
  Country: None (occurrence: None)
  Receive Date: 20070205
  Receipt Date: 20060413
  Transmission Date: 20070707
  Serious: Yes (Other)
  Sender: FDA-Public Use
  Company Number: PHEH2006US04934

PATIENT
  Age: 62 Year
  Sex: Male

DRUGS (4)
  1. RITALIN [Suspect]
     Indication: OBSESSIVE-COMPULSIVE DISORDER
     Dosage: 40 MG, QD, ORAL
     Route: 048
     Dates: start: 19930101
  2. METHYLPHENIDATE HCL [Suspect]
     Indication: OBSESSIVE-COMPULSIVE DISORDER
     Dosage: 40 MG, QD, ORAL
     Route: 048
  3. LISINOPRIL [Concomitant]
  4. CLONIDINE [Concomitant]

REACTIONS (2)
  - BLOOD PRESSURE DECREASED [None]
  - HEART RATE INCREASED [None]
